FAERS Safety Report 11559747 (Version 1)
Quarter: 2015Q3

REPORT INFORMATION
  Report Type: Spontaneous
  Country: US (occurrence: US)
  Receive Date: 20150916
  Receipt Date: 20150916
  Transmission Date: 20151125
  Serious: No
  Sender: FDA-Public Use
  Company Number: US-ELI_LILLY_AND_COMPANY-US200808005720

PATIENT
  Sex: Female

DRUGS (10)
  1. VITAMIN D [Concomitant]
     Active Substance: CHOLECALCIFEROL
  2. LESCOL [Concomitant]
     Active Substance: FLUVASTATIN SODIUM
  3. CALCIUM [Concomitant]
     Active Substance: CALCIUM
  4. DIOVAN [Concomitant]
     Active Substance: VALSARTAN
  5. FORTEO [Suspect]
     Active Substance: TERIPARATIDE
     Dates: start: 20080716
  6. PLAVIX [Concomitant]
     Active Substance: CLOPIDOGREL BISULFATE
  7. FOLIC ACID. [Concomitant]
     Active Substance: FOLIC ACID
  8. VITAMIN C [Concomitant]
     Active Substance: ASCORBIC ACID
  9. VERAPAMIL [Concomitant]
     Active Substance: VERAPAMIL HYDROCHLORIDE
  10. ASPIRIN. [Concomitant]
     Active Substance: ASPIRIN

REACTIONS (2)
  - Abdominal pain [Not Recovered/Not Resolved]
  - Decreased appetite [Not Recovered/Not Resolved]
